FAERS Safety Report 11132534 (Version 2)
Quarter: 2019Q2

REPORT INFORMATION
  Report Type: Spontaneous
  Country: US (occurrence: US)
  Receive Date: 20150522
  Receipt Date: 20190625
  Transmission Date: 20190711
  Serious: Yes (Other)
  Sender: FDA-Public Use
  Company Number: US-RECKITT BENCKISER PHARMACEUTICAL, INC-RB-079356-2015

PATIENT
  Age: 34 Year
  Sex: Female

DRUGS (7)
  1. BUPRENORPHINE. [Suspect]
     Active Substance: BUPRENORPHINE
     Indication: AGGRESSION
     Dosage: 1 MG, 30 DAYS
     Route: 060
  2. NALTREXONE [Suspect]
     Active Substance: NALTREXONE
     Indication: MOOD ALTERED
     Dosage: 0.25MG, 15 DAYS
     Route: 060
  3. BUPRENORPHINE. [Suspect]
     Active Substance: BUPRENORPHINE
     Dosage: DOSE RANGE OF 0.5?3 MG DAILY
     Route: 060
  4. NALTREXONE [Suspect]
     Active Substance: NALTREXONE
     Indication: AGGRESSION
     Dosage: 0.25MG, 30 DAYS
     Route: 060
  5. BUPRENORPHINE. [Suspect]
     Active Substance: BUPRENORPHINE
     Indication: MOOD ALTERED
     Dosage: 1 MG, 15 DAYS
     Route: 060
  6. BUPRENORPHINE. [Suspect]
     Active Substance: BUPRENORPHINE
     Indication: INTENTIONAL SELF-INJURY
     Dosage: 2 MG, 2 DAYS
     Route: 060
  7. NALTREXONE [Suspect]
     Active Substance: NALTREXONE
     Indication: INTENTIONAL SELF-INJURY
     Dosage: 0.5 MG, 2 DAYS
     Route: 060

REACTIONS (4)
  - Dizziness [Unknown]
  - Intentional underdose [Recovered/Resolved]
  - Off label use [Unknown]
  - Intentional self-injury [Unknown]
